FAERS Safety Report 8363597-5 (Version None)
Quarter: 2012Q2

REPORT INFORMATION
  Report Type: 
  Country: None (occurrence: None)
  Receive Date: 20120516
  Receipt Date: 20120510
  Transmission Date: 20120825
  Serious: Yes (Hospitalization)
  Sender: FDA-Public Use
  Company Number: DE-PFIZER INC-DE-WYE-G04840109

PATIENT
  Age: 48 Year
  Sex: Female

DRUGS (18)
  1. MIRTAZAPINE [Interacting]
     Dosage: 30 MG, 1X/DAY
     Route: 048
     Dates: start: 20090819, end: 20091002
  2. SEROQUEL [Interacting]
     Dosage: 550-400 MG PER DAY
     Route: 048
     Dates: start: 20090812, end: 20090827
  3. MIRTAZAPINE [Interacting]
     Indication: DEPRESSION
     Dosage: 45 MG, 1X/DAY
     Route: 048
     Dates: start: 20090601, end: 20090818
  4. SEROQUEL [Interacting]
     Dosage: 475 MG, 1X/DAY
     Route: 048
     Dates: start: 20090804, end: 20090811
  5. SEROQUEL [Interacting]
     Dosage: 200 MG, 1X/DAY
     Route: 048
     Dates: start: 20091113
  6. DIAZEPAM [Suspect]
     Dosage: 30 MG, 1X/DAY
     Route: 048
     Dates: start: 20090811, end: 20090824
  7. SEROQUEL [Interacting]
     Dosage: 400 MG, 1X/DAY
     Route: 048
     Dates: start: 20090828, end: 20090915
  8. BISOPROLOL [Concomitant]
     Route: 048
  9. VENLAFAXINE HCL [Interacting]
     Dosage: 225 MG, 1X/DAY
     Route: 048
     Dates: start: 20090927, end: 20090928
  10. MIRTAZAPINE [Interacting]
     Dosage: 15 MG, 1X/DAY
     Route: 048
     Dates: start: 20091003, end: 20091030
  11. SEROQUEL [Interacting]
     Dosage: 300 MG, 1X/DAY
     Route: 048
     Dates: start: 20090713, end: 20090729
  12. VENLAFAXINE HCL [Interacting]
     Indication: DEPRESSION
     Dosage: 150 MG, 1X/DAY
     Route: 048
     Dates: start: 20090601, end: 20090722
  13. SEROQUEL [Interacting]
     Dosage: 375 MG, 1X/DAY
     Route: 048
     Dates: start: 20090730, end: 20090803
  14. SEROQUEL [Interacting]
     Dosage: 300 MG, 1X/DAY
     Route: 048
     Dates: start: 20090101, end: 20091112
  15. PANTOPRAZOLE [Concomitant]
     Dosage: UNK
     Route: 048
     Dates: start: 20090719
  16. VENLAFAXINE HCL [Interacting]
     Dosage: 300 MG, 1X/DAY
     Route: 048
     Dates: start: 20090723, end: 20090923
  17. VENLAFAXINE HCL [Interacting]
     Dosage: 262.5 MG, 1X/DAY
     Route: 048
     Dates: start: 20090924, end: 20090926
  18. SEROQUEL [Interacting]
     Indication: DEPRESSION
     Dosage: 200 MG, 1X/DAY
     Route: 048
     Dates: start: 20090704, end: 20090712

REACTIONS (4)
  - DRUG INTERACTION [None]
  - PYELONEPHRITIS [None]
  - CYSTITIS [None]
  - URINARY RETENTION [None]
